FAERS Safety Report 25664835 (Version 1)
Quarter: 2025Q3

REPORT INFORMATION
  Report Type: Spontaneous
  Country: AU (occurrence: AU)
  Receive Date: 20250811
  Receipt Date: 20250811
  Transmission Date: 20251021
  Serious: Yes (Hospitalization)
  Sender: ACCORD
  Company Number: AU-MLMSERVICE-20250728-PI588922-00249-2

PATIENT
  Age: 35 Year
  Sex: Female

DRUGS (7)
  1. FLUOROURACIL [Suspect]
     Active Substance: FLUOROURACIL
     Indication: Colorectal cancer stage IV
     Dates: start: 2022, end: 2022
  2. OXALIPLATIN [Suspect]
     Active Substance: OXALIPLATIN
     Indication: Colorectal cancer stage IV
     Dates: start: 2022, end: 2022
  3. OXALIPLATIN [Suspect]
     Active Substance: OXALIPLATIN
     Indication: Colorectal cancer
     Dates: start: 2022, end: 2022
  4. OXALIPLATIN [Suspect]
     Active Substance: OXALIPLATIN
     Indication: Metastases to liver
     Dates: start: 2022, end: 2022
  5. FLUOROURACIL [Suspect]
     Active Substance: FLUOROURACIL
     Indication: Colorectal cancer
     Dates: start: 2022, end: 2022
  6. FLUOROURACIL [Suspect]
     Active Substance: FLUOROURACIL
     Indication: Metastases to liver
     Dates: start: 2022, end: 2022
  7. OXALIPLATIN [Suspect]
     Active Substance: OXALIPLATIN
     Indication: Colorectal cancer
     Dates: start: 2022, end: 2022

REACTIONS (3)
  - Abdominal discomfort [Unknown]
  - Malnutrition [Unknown]
  - Hypophagia [Unknown]

NARRATIVE: CASE EVENT DATE: 20220101
